FAERS Safety Report 6566531-3 (Version None)
Quarter: 2010Q1

REPORT INFORMATION
  Report Type: 
  Country: None (occurrence: None)
  Receive Date: 20100202
  Receipt Date: 20100125
  Transmission Date: 20100710
  Serious: Yes (Hospitalization)
  Sender: FDA-Public Use
  Company Number: US-ASTRAZENECA-2010SE03307

PATIENT
  Age: 65 Year
  Sex: Female

DRUGS (2)
  1. FASLODEX [Suspect]
     Indication: NEOPLASM MALIGNANT
     Route: 058
     Dates: start: 20091204, end: 20091204
  2. FASLODEX [Suspect]
     Route: 058
     Dates: start: 20100111, end: 20100111

REACTIONS (2)
  - INJECTION SITE INFECTION [None]
  - INJECTION SITE NECROSIS [None]
